FAERS Safety Report 8102047 (Version 5)
Quarter: 2013Q2

REPORT INFORMATION
  Report Type: Spontaneous
  Country: US (occurrence: US)
  Receive Date: 20110823
  Receipt Date: 20130628
  Transmission Date: 20140414
  Serious: Yes (Hospitalization, Other)
  Sender: FDA-Public Use
  Company Number: US-ROCHE-797091

PATIENT
  Age: 20 Year
  Sex: Female
  Weight: 48.12 kg

DRUGS (1)
  1. ACCUTANE [Suspect]
     Indication: ACNE
     Route: 048
     Dates: start: 19980301, end: 1998

REACTIONS (11)
  - Inflammatory bowel disease [Unknown]
  - Colitis ulcerative [Unknown]
  - Anxiety [Unknown]
  - Depression [Unknown]
  - Crohn^s disease [Unknown]
  - Irritable bowel syndrome [Unknown]
  - Dry skin [Unknown]
  - Lip dry [Unknown]
  - Dry eye [Unknown]
  - Nasal dryness [Unknown]
  - Blood triglycerides increased [Unknown]
